FAERS Safety Report 11026959 (Version 1)
Quarter: 2015Q2

REPORT INFORMATION
  Report Type: Spontaneous
  Country: US (occurrence: US)
  Receive Date: 20150414
  Receipt Date: 20150414
  Transmission Date: 20150821
  Serious: Yes (Death)
  Sender: FDA-Public Use
  Company Number: US-ELI_LILLY_AND_COMPANY-US201504003845

PATIENT

DRUGS (2)
  1. OLAPARIB [Suspect]
     Active Substance: OLAPARIB
     Indication: PANCREATIC CARCINOMA METASTATIC
     Dosage: 100 MG, BID
     Route: 048
  2. GEMCITABINE HYDROCHLORIDE. [Suspect]
     Active Substance: GEMCITABINE HYDROCHLORIDE
     Indication: PANCREATIC CARCINOMA METASTATIC
     Dosage: 600 MG/M2, CYCLICAL
     Route: 042

REACTIONS (2)
  - Renal failure [Fatal]
  - Peritonitis bacterial [Fatal]
